FAERS Safety Report 15488476 (Version 2)
Quarter: 2019Q1

REPORT INFORMATION
  Report Type: Spontaneous
  Country: US (occurrence: US)
  Receive Date: 20181011
  Receipt Date: 20190107
  Transmission Date: 20190417
  Serious: Yes (Hospitalization)
  Sender: FDA-Public Use
  Company Number: US-JNJFOC-20181013960

PATIENT
  Age: 65 Year
  Sex: Male

DRUGS (1)
  1. INVOKANA [Suspect]
     Active Substance: CANAGLIFLOZIN
     Indication: TYPE 2 DIABETES MELLITUS
     Route: 048
     Dates: start: 20140409

REACTIONS (5)
  - Gangrene [Unknown]
  - Ulcer [Unknown]
  - Toe amputation [Unknown]
  - Metatarsal excision [Unknown]
  - Foot amputation [Unknown]

NARRATIVE: CASE EVENT DATE: 20160426
